FAERS Safety Report 9520299 (Version 1)
Quarter: 2013Q3

REPORT INFORMATION
  Report Type: Spontaneous
  Country: US (occurrence: US)
  Receive Date: 20130912
  Receipt Date: 20130912
  Transmission Date: 20140515
  Serious: Yes (Other)
  Sender: FDA-Public Use
  Company Number: ALCN2013US004578

PATIENT
  Sex: 0

DRUGS (1)
  1. ICAPS LZ [Suspect]
     Dosage: UNK
     Route: 048
     Dates: start: 201308

REACTIONS (1)
  - Kidney infection [Unknown]
